FAERS Safety Report 6837249-4 (Version None)
Quarter: 2010Q3

REPORT INFORMATION
  Report Type: 
  Country: None (occurrence: None)
  Receive Date: 20100713
  Receipt Date: 20070507
  Transmission Date: 20110219
  Serious: No
  Sender: FDA-Public Use
  Company Number: US-PFIZER INC-2007038145

PATIENT
  Sex: Female
  Weight: 73.636 kg

DRUGS (11)
  1. CHANTIX [Suspect]
     Indication: SMOKING CESSATION THERAPY
     Dates: start: 20070401
  2. SYNTHROID [Concomitant]
  3. PLAVIX [Concomitant]
  4. WARFARIN SODIUM [Concomitant]
  5. TRICOR [Concomitant]
  6. DYAZIDE [Concomitant]
  7. ALTACE [Concomitant]
  8. LIPITOR [Concomitant]
  9. ZETIA [Concomitant]
  10. DILACOR XR [Concomitant]
  11. CYMBALTA [Concomitant]

REACTIONS (6)
  - ASTHENIA [None]
  - DEPRESSION [None]
  - FEELING ABNORMAL [None]
  - FLUSHING [None]
  - MOOD SWINGS [None]
  - NAUSEA [None]
